FAERS Safety Report 6599499-4 (Version None)
Quarter: 2010Q1

REPORT INFORMATION
  Report Type: 
  Country: None (occurrence: None)
  Receive Date: 20100216
  Receipt Date: 20100202
  Transmission Date: 20100710
  Serious: Yes (Other)
  Sender: FDA-Public Use
  Company Number: B0632098A

PATIENT
  Age: 67 Year
  Sex: Female

DRUGS (4)
  1. BUPROPION HYDROCHLORIDE [Suspect]
     Indication: DEPRESSION
     Dosage: ORAL
     Route: 048
  2. VENLAFAXINE HYDROCHLORIDE [Concomitant]
  3. OLANZAPINE [Concomitant]
  4. ESTAZOLAM [Concomitant]

REACTIONS (4)
  - CHOKING [None]
  - DYSTONIA [None]
  - FALL [None]
  - PARKINSONISM [None]
